FAERS Safety Report 18710856 (Version 1)
Quarter: 2021Q1

REPORT INFORMATION
  Report Type: Spontaneous
  Country: NZ (occurrence: NZ)
  Receive Date: 20210107
  Receipt Date: 20210107
  Transmission Date: 20210419
  Serious: Yes (Hospitalization, Other)
  Sender: FDA-Public Use
  Company Number: NZ-MICRO LABS LIMITED-ML2021-00020

PATIENT
  Sex: Male

DRUGS (7)
  1. LEVETIRACETAM. [Suspect]
     Active Substance: LEVETIRACETAM
  2. CITALOPRAM [Suspect]
     Active Substance: CITALOPRAM HYDROBROMIDE
  3. MELATONIN [Suspect]
     Active Substance: MELATONIN
     Indication: INSOMNIA
  4. LAMOTRIGINE. [Suspect]
     Active Substance: LAMOTRIGINE
  5. LAMOTRIGINE. [Suspect]
     Active Substance: LAMOTRIGINE
     Dosage: HIGHER DOSE
  6. CARBAMAZEPINE. [Suspect]
     Active Substance: CARBAMAZEPINE
  7. SODIUM VALPROATE [Suspect]
     Active Substance: VALPROATE SODIUM

REACTIONS (1)
  - Subacute cutaneous lupus erythematosus [Recovering/Resolving]
